FAERS Safety Report 17829086 (Version 4)
Quarter: 2020Q3

REPORT INFORMATION
  Report Type: Spontaneous
  Country: AU (occurrence: AU)
  Receive Date: 20200527
  Receipt Date: 20200709
  Transmission Date: 20201102
  Serious: Yes (Other)
  Sender: FDA-Public Use
  Company Number: AU-SA-2020SA115534

PATIENT

DRUGS (24)
  1. HAWTHORNE [Concomitant]
  2. SILYMARIN [SILYBUM MARIANUM] [Concomitant]
     Active Substance: DIETARY SUPPLEMENT\HERBALS\MILK THISTLE
  3. INFLAVONOID INTENSIVE CARE [Concomitant]
  4. INSULIN [Concomitant]
     Active Substance: INSULIN NOS
     Dosage: SHORT, MEDIUM AND LONG ACTING
  5. COQ10 [UBIDECARENONE] [Concomitant]
     Active Substance: UBIDECARENONE
  6. MTHF [Concomitant]
  7. MELATONIN [Concomitant]
     Active Substance: MELATONIN
  8. ACETYL?L?CARNITINE [Concomitant]
  9. LANTUS [Concomitant]
     Active Substance: INSULIN GLARGINE
  10. METABOL COMPLEX [Concomitant]
  11. SELENIUM [SELENOMETHIONINE] [Concomitant]
  12. OLMESARTAN [Concomitant]
     Active Substance: OLMESARTAN
     Indication: HYPERTENSION
     Dosage: 20 MG, QD
     Route: 048
  13. SELSUN GOLD [Suspect]
     Active Substance: SELENIUM SULFIDE
     Indication: SEBORRHOEIC DERMATITIS
     Dosage: UNK UNK, QOD
     Route: 061
     Dates: start: 20200429, end: 20200506
  14. NOVORAPID [Suspect]
     Active Substance: INSULIN ASPART
  15. BIOCEUTICALS ULTRACLEAN 85 [Concomitant]
  16. VITAMIN E NOS [Concomitant]
     Active Substance: .ALPHA.-TOCOPHEROL
  17. B12 METHYLCOBALAMIN [Concomitant]
  18. SELSUN GOLD [Suspect]
     Active Substance: SELENIUM SULFIDE
     Indication: DANDRUFF
  19. GLUTATHIONE [Concomitant]
     Active Substance: GLUTATHIONE
  20. EPA DHA 720 [Concomitant]
     Active Substance: DOCONEXENT\ICOSAPENT
  21. GABA [GABAPENTIN] [Concomitant]
     Active Substance: GABAPENTIN
  22. REHMANNIA COMPLEX [Concomitant]
  23. METAGENICS SUPER MUSHROOM COMPLEX [Concomitant]
  24. PREDNISOLONE. [Concomitant]
     Active Substance: PREDNISOLONE
     Indication: MYOSITIS
     Dosage: 2 MG, QD
     Route: 048

REACTIONS (9)
  - Electrolyte depletion [Recovered/Resolved]
  - Fatigue [Recovered/Resolved]
  - Chest discomfort [Recovered/Resolved]
  - Transient ischaemic attack [Recovered/Resolved]
  - Dysarthria [Recovered/Resolved]
  - Malaise [Recovered/Resolved]
  - Dyspnoea [Recovered/Resolved]
  - Dizziness [Not Recovered/Not Resolved]
  - Headache [Recovered/Resolved]

NARRATIVE: CASE EVENT DATE: 2020
